FAERS Safety Report 15352554 (Version 3)
Quarter: 2018Q3

REPORT INFORMATION
  Report Type: Spontaneous
  Country: DE (occurrence: DE)
  Receive Date: 20180905
  Receipt Date: 20180911
  Transmission Date: 20181010
  Serious: Yes (Death, Life-Threatening, Hospitalization, Other)
  Sender: FDA-Public Use
  Company Number: PHHY2018DE073666

PATIENT
  Age: 60 Year
  Sex: Male
  Weight: 63 kg

DRUGS (2)
  1. VARGATEF [Suspect]
     Active Substance: NINTEDANIB
     Indication: LUNG ADENOCARCINOMA
     Dosage: 400 MG, QD
     Route: 048
     Dates: start: 20180517, end: 20180604
  2. DOCETAXEL. [Suspect]
     Active Substance: DOCETAXEL
     Indication: LUNG ADENOCARCINOMA
     Dosage: 75 MG/M2, BSA
     Route: 042

REACTIONS (6)
  - Constipation [Unknown]
  - Nausea [Not Recovered/Not Resolved]
  - Death [Fatal]
  - Anaemia [Recovered/Resolved]
  - Vomiting [Recovered/Resolved]
  - Dysphagia [Unknown]

NARRATIVE: CASE EVENT DATE: 20180601
